FAERS Safety Report 10434668 (Version 1)
Quarter: 2014Q2

REPORT INFORMATION
  Report Type: Spontaneous
  Country: None (occurrence: None)
  Receive Date: 20140514
  Receipt Date: 20140514
  Transmission Date: 20141212
  Serious: Yes (Hospitalization)
  Sender: FDA-Public Use
  Company Number: 095901U

PATIENT
  Sex: Female

DRUGS (2)
  1. CIMZIA [Suspect]
     Indication: CROHN^S DISEASE
     Dosage: 400 MG AT 0, 2 AND 4 WEEKS
     Dates: start: 20130719, end: 2013
  2. REMICADE [Concomitant]

REACTIONS (1)
  - Hospitalisation [None]
